FAERS Safety Report 6823578-7 (Version None)
Quarter: 2010Q3

REPORT INFORMATION
  Report Type: 
  Country: None (occurrence: None)
  Receive Date: 20100708
  Receipt Date: 20060807
  Transmission Date: 20110219
  Serious: No
  Sender: FDA-Public Use
  Company Number: US-PFIZER INC-2006098133

PATIENT
  Sex: Male
  Weight: 65.77 kg

DRUGS (9)
  1. CHANTIX [Suspect]
     Indication: SMOKING CESSATION THERAPY
     Route: 065
     Dates: start: 20060803
  2. BUSPAR [Interacting]
     Indication: PRODUCT USED FOR UNKNOWN INDICATION
     Route: 065
  3. CYMBALTA [Interacting]
     Indication: PRODUCT USED FOR UNKNOWN INDICATION
     Route: 065
  4. LASIX [Concomitant]
     Route: 065
  5. ALBUTEROL [Concomitant]
     Route: 065
  6. SPIRIVA [Concomitant]
     Route: 065
  7. PREDNISONE [Concomitant]
     Route: 065
  8. ADVAIR DISKUS 100/50 [Concomitant]
     Route: 065
  9. TAMSULOSIN HCL [Concomitant]
     Route: 065

REACTIONS (3)
  - DECREASED APPETITE [None]
  - DRUG INTERACTION [None]
  - SOMNOLENCE [None]
